FAERS Safety Report 13872924 (Version 1)
Quarter: 2017Q3

REPORT INFORMATION
  Report Type: Spontaneous
  Country: US (occurrence: US)
  Receive Date: 20170816
  Receipt Date: 20170816
  Transmission Date: 20171127
  Serious: No
  Sender: FDA-Public Use
  Company Number: US-TARO-2016TAR01017

PATIENT
  Age: 68 Year
  Sex: Female

DRUGS (2)
  1. LAMISIL [Suspect]
     Active Substance: TERBINAFINE HYDROCHLORIDE
     Indication: FUNGAL INFECTION
     Dosage: 1 %, 2X/DAY
     Route: 061
     Dates: start: 201608, end: 201609
  2. TWO UNSPECIFIED HEART MEDICATIONS [Concomitant]
     Dosage: UNK
     Dates: start: 2012

REACTIONS (5)
  - Alopecia [Not Recovered/Not Resolved]
  - Therapeutic response unexpected [Not Recovered/Not Resolved]
  - Off label use [Recovered/Resolved]
  - Incorrect drug administration duration [Recovered/Resolved]
  - Emotional distress [Not Recovered/Not Resolved]

NARRATIVE: CASE EVENT DATE: 201608
